FAERS Safety Report 6025145-4 (Version None)
Quarter: 2008Q4

REPORT INFORMATION
  Report Type: 
  Country: None (occurrence: None)
  Receive Date: 20081231
  Receipt Date: 20081226
  Transmission Date: 20090506
  Serious: Yes (Hospitalization, Other)
  Sender: FDA-Public Use
  Company Number: US-AMGEN-QUU325823

PATIENT
  Sex: Female

DRUGS (1)
  1. ENBREL [Suspect]
     Indication: RHEUMATOID ARTHRITIS
     Route: 058
     Dates: start: 20010101

REACTIONS (8)
  - ALOPECIA [None]
  - ANAEMIA [None]
  - COLON CANCER [None]
  - FATIGUE [None]
  - HAEMATOCHEZIA [None]
  - NAUSEA [None]
  - SQUAMOUS CELL CARCINOMA [None]
  - VOMITING [None]
